FAERS Safety Report 19446933 (Version 2)
Quarter: 2021Q2

REPORT INFORMATION
  Report Type: Spontaneous
  Country: US (occurrence: US)
  Receive Date: 20210622
  Receipt Date: 20210629
  Transmission Date: 20210717
  Serious: No
  Sender: FDA-Public Use
  Company Number: US-SA-2021SA204493

PATIENT
  Age: 77 Year
  Sex: Male

DRUGS (2)
  1. DUPIXENT [Suspect]
     Active Substance: DUPILUMAB
     Indication: DERMATITIS ATOPIC
  2. DUPIXENT [Suspect]
     Active Substance: DUPILUMAB
     Indication: DERMATITIS
     Dosage: 300 MG, QOW
     Dates: start: 20200514

REACTIONS (10)
  - Rash [Unknown]
  - Dermatitis [Not Recovered/Not Resolved]
  - Temperature intolerance [Unknown]
  - Fungal infection [Unknown]
  - Hyperhidrosis [Unknown]
  - Sleep disorder [Unknown]
  - Dermatitis atopic [Unknown]
  - Pain [Unknown]
  - Pyrexia [Unknown]
  - Product use in unapproved indication [Unknown]

NARRATIVE: CASE EVENT DATE: 20210617
